FAERS Safety Report 13267183 (Version 1)
Quarter: 2017Q1

REPORT INFORMATION
  Report Type: Spontaneous
  Country: DE (occurrence: DE)
  Receive Date: 20170224
  Receipt Date: 20170224
  Transmission Date: 20170428
  Serious: Yes (Hospitalization)
  Sender: FDA-Public Use
  Company Number: DE-ASTRAZENECA-2017SE19917

PATIENT
  Sex: Female

DRUGS (1)
  1. EKLIRA [Suspect]
     Active Substance: ACLIDINIUM BROMIDE
     Route: 055
     Dates: start: 201605

REACTIONS (2)
  - Dyspnoea [Unknown]
  - Device malfunction [Unknown]
